FAERS Safety Report 9666262 (Version 3)
Quarter: 2014Q1

REPORT INFORMATION
  Report Type: Report from Study
  Country: US (occurrence: US)
  Receive Date: 20131104
  Receipt Date: 20140115
  Transmission Date: 20141002
  Serious: Yes (Hospitalization)
  Sender: FDA-Public Use
  Company Number: US-SA-2013SA111926

PATIENT
  Age: 55 Year
  Sex: Male
  Weight: 113.89 kg

DRUGS (15)
  1. ELOXATIN [Suspect]
     Indication: RECTAL CANCER
     Route: 042
     Dates: start: 20130903, end: 20130903
  2. ELOXATIN [Suspect]
     Indication: RECTAL CANCER
     Route: 042
     Dates: start: 20131015, end: 20131015
  3. AFLIBERCEPT [Suspect]
     Indication: RECTAL CANCER
     Route: 042
     Dates: start: 20130325, end: 20130325
  4. AFLIBERCEPT [Suspect]
     Indication: RECTAL CANCER
     Route: 042
     Dates: start: 20131015, end: 20131015
  5. 5-FU [Suspect]
     Indication: RECTAL CANCER
     Route: 042
     Dates: start: 20130325, end: 20130325
  6. 5-FU [Suspect]
     Indication: RECTAL CANCER
     Route: 042
     Dates: start: 20130903, end: 20130903
  7. 5-FU [Suspect]
     Indication: RECTAL CANCER
     Route: 042
     Dates: start: 20131015, end: 20131015
  8. 5-FU [Suspect]
     Indication: RECTAL CANCER
     Route: 042
     Dates: start: 20131015, end: 20131015
  9. LEUCOVORIN [Suspect]
     Indication: RECTAL CANCER
     Route: 042
     Dates: start: 20131015, end: 20131015
  10. LEUCOVORIN [Suspect]
     Indication: RECTAL CANCER
     Route: 042
     Dates: start: 20130903, end: 20130903
  11. GLIPIZIDE [Concomitant]
     Indication: DIABETES MELLITUS
     Dates: start: 201203
  12. METFORMIN HYDROCHLORIDE [Concomitant]
     Indication: DIABETES MELLITUS
     Dates: start: 201103
  13. COZAAR [Concomitant]
     Indication: HYPERTENSION
     Dates: start: 20130930
  14. HYDROCHLOROTHIAZIDE [Concomitant]
     Indication: HYPERTENSION
     Dates: start: 20130924
  15. FLOMAX [Concomitant]
     Indication: BENIGN PROSTATIC HYPERPLASIA
     Dates: start: 20130826

REACTIONS (1)
  - Subcutaneous abscess [Recovered/Resolved]
